FAERS Safety Report 5360795-X (Version None)
Quarter: 2007Q2

REPORT INFORMATION
  Report Type: 
  Country: None (occurrence: None)
  Receive Date: 20070618
  Receipt Date: 20070606
  Transmission Date: 20071010
  Serious: Yes (Other)
  Sender: FDA-Public Use
  Company Number: GB-ASTRAZENECA-2007GB00938

PATIENT
  Age: 25143 Day
  Sex: Female
  Weight: 52.7 kg

DRUGS (9)
  1. ARIMIDEX [Suspect]
     Indication: BREAST CANCER
     Route: 048
     Dates: start: 20070323, end: 20070421
  2. ASPIRIN [Concomitant]
     Dosage: HAD BEEN ON FOR MANY YEARS
     Route: 048
  3. ISOSORBIDE MONONITRATE [Concomitant]
     Dosage: HAD BEEN ON FOR MANY YEARS
     Route: 048
  4. FLUOXETINE [Concomitant]
     Dosage: HAD BEEN ON FOR MANY YEARS
     Route: 048
  5. GLIMEPIRIDE [Concomitant]
     Dosage: HAD BEEN ON FOR MANY YEARS
     Route: 048
  6. METFORMIN HCL [Concomitant]
     Dosage: HAD BEEN ON FOR MANY YEARS
     Route: 048
  7. QUININE BISULPHATE [Concomitant]
     Dosage: HAD BEEN ON FOR MANY YEARS
     Route: 048
  8. SIMVASTATIN [Concomitant]
     Dosage: HAD BEEN ON FOR MANY YEARS
     Route: 048
  9. ZOPICLONE [Concomitant]
     Dosage: HAD BEEN ON FOR MANY YEARS
     Route: 048

REACTIONS (5)
  - ARTHRALGIA [None]
  - BLOOD GLUCOSE INCREASED [None]
  - DEPRESSED MOOD [None]
  - MOOD SWINGS [None]
  - TEARFULNESS [None]
